FAERS Safety Report 5904195-X (Version None)
Quarter: 2008Q3

REPORT INFORMATION
  Report Type: 
  Country: None (occurrence: None)
  Receive Date: 20080930
  Receipt Date: 20080930
  Transmission Date: 20090109
  Serious: No
  Sender: FDA-Public Use
  Company Number: None

PATIENT
  Age: 32 Year
  Sex: Female
  Weight: 63.5036 kg

DRUGS (1)
  1. CREST PRO-HEALTH RINSE [Suspect]
     Indication: GINGIVITIS
     Dosage: 1/2 CAPFUL ONCE DAILY DENTAL
     Route: 004
     Dates: start: 20080920, end: 20080928

REACTIONS (5)
  - AGEUSIA [None]
  - GLOSSODYNIA [None]
  - MOUTH ULCERATION [None]
  - PARAESTHESIA ORAL [None]
  - TOOTH DISCOLOURATION [None]
